FAERS Safety Report 19802531 (Version 1)
Quarter: 2021Q3

REPORT INFORMATION
  Report Type: Spontaneous
  Country: JP (occurrence: JP)
  Receive Date: 20210908
  Receipt Date: 20210908
  Transmission Date: 20211014
  Serious: Yes (Death, Hospitalization)
  Sender: FDA-Public Use
  Company Number: JP-TEVA-2021-JP-1949856

PATIENT
  Age: 67 Year
  Sex: Male

DRUGS (8)
  1. METHYLPREDNISOLONE. [Suspect]
     Active Substance: METHYLPREDNISOLONE
     Indication: IMMUNOSUPPRESSANT DRUG THERAPY
     Dosage: 2 MILLIGRAM DAILY;
     Route: 048
  2. HEPARIN [Concomitant]
     Active Substance: HEPARIN SODIUM
     Indication: PRODUCT USED FOR UNKNOWN INDICATION
     Route: 065
  3. TACROLIMUS. [Suspect]
     Active Substance: TACROLIMUS
     Indication: IMMUNOSUPPRESSANT DRUG THERAPY
     Dosage: 2 MILLIGRAM DAILY;
     Route: 048
  4. AZITHROMYCIN ANHYDROUS. [Suspect]
     Active Substance: AZITHROMYCIN ANHYDROUS
     Indication: COVID-19 PNEUMONIA
     Dosage: 500 MILLIGRAM DAILY;
     Route: 065
  5. MYCOPHENOLATE MOFETIL. [Suspect]
     Active Substance: MYCOPHENOLATE MOFETIL
     Indication: IMMUNOSUPPRESSANT DRUG THERAPY
     Dosage: 500 MILLIGRAM DAILY;
     Route: 048
  6. HYDROCORTISONE. [Suspect]
     Active Substance: HYDROCORTISONE
     Indication: COVID-19 PNEUMONIA
     Dosage: 240 MILLIGRAM DAILY;
     Route: 065
  7. HYDROCORTISONE. [Suspect]
     Active Substance: HYDROCORTISONE
     Dosage: 100 MILLIGRAM DAILY;
     Route: 065
  8. HYDROXYCHLOROQUINE [Suspect]
     Active Substance: HYDROXYCHLOROQUINE
     Indication: COVID-19 PNEUMONIA
     Dosage: 400 MILLIGRAM DAILY;
     Route: 065

REACTIONS (6)
  - COVID-19 [Fatal]
  - Viral load increased [Fatal]
  - Acute respiratory distress syndrome [Fatal]
  - Multiple organ dysfunction syndrome [Fatal]
  - Off label use [Fatal]
  - Drug ineffective for unapproved indication [Fatal]
